FAERS Safety Report 9153655 (Version 1)
Quarter: 2013Q1

REPORT INFORMATION
  Report Type: Spontaneous
  Country: GB (occurrence: None)
  Receive Date: 20130307
  Receipt Date: 20130307
  Transmission Date: 20140127
  Serious: Yes (Death, Other)
  Sender: FDA-Public Use
  Company Number: GER/UKI/13/0028361

PATIENT
  Age: 52 Year
  Sex: Male
  Weight: 79.37 kg

DRUGS (8)
  1. FLUOXETINE [Suspect]
     Indication: ANXIETY
  2. FLUOXETINE [Suspect]
     Indication: DEPRESSION
  3. MIRTAZAPINE (MIRTAZAPINE) [Suspect]
     Indication: ANXIETY
     Route: 048
     Dates: start: 20120607
  4. MIRTAZAPINE (MIRTAZAPINE) [Suspect]
     Indication: DEPRESSION
     Route: 048
     Dates: start: 20120607
  5. SIMVASTATIN [Suspect]
     Indication: BLOOD CHOLESTEROL INCREASED
     Dosage: 1 IN 1 D
     Route: 048
     Dates: end: 20120607
  6. CO-TENIDONE (TENORETIC) [Concomitant]
  7. LOSARTAN (LOSARTAN) [Concomitant]
  8. LOSEC (OMEPRAZOLE) [Concomitant]

REACTIONS (8)
  - Blood creatine phosphokinase increased [None]
  - Inflammation [None]
  - Pain in jaw [None]
  - Myalgia [None]
  - Muscle spasms [None]
  - Neck pain [None]
  - Paraesthesia [None]
  - Completed suicide [None]
